FAERS Safety Report 4604301-3 (Version None)
Quarter: 2005Q1

REPORT INFORMATION
  Report Type: 
  Country: None (occurrence: None)
  Receive Date: 20050310
  Receipt Date: 20050308
  Transmission Date: 20050727
  Serious: Yes (Death)
  Sender: FDA-Public Use
  Company Number: 05-03-0355

PATIENT
  Age: 96 Year
  Sex: Female

DRUGS (1)
  1. CLOZAPINE [Suspect]
     Indication: PSYCHOTIC DISORDER
     Dosage: 12.5-87.5MG Q ORAL
     Route: 048
     Dates: start: 20020701, end: 20050101

REACTIONS (1)
  - CARDIAC FAILURE CONGESTIVE [None]
